FAERS Safety Report 7032127-2 (Version None)
Quarter: 2010Q4

REPORT INFORMATION
  Report Type: 
  Country: None (occurrence: None)
  Receive Date: 20101007
  Receipt Date: 20100924
  Transmission Date: 20110411
  Serious: Yes (Hospitalization)
  Sender: FDA-Public Use
  Company Number: US-ELI_LILLY_AND_COMPANY-US201009007666

PATIENT
  Sex: Female

DRUGS (3)
  1. FORTEO [Suspect]
     Indication: OSTEOPOROSIS
     Dosage: 20 UG, DAILY (1/D)
     Dates: start: 20080101, end: 20100909
  2. VITAMINS [Concomitant]
  3. ANTIHYPERTENSIVES [Concomitant]

REACTIONS (6)
  - ARTHRITIS [None]
  - BACK PAIN [None]
  - BALANCE DISORDER [None]
  - CONTUSION [None]
  - FALL [None]
  - LIMB INJURY [None]
